FAERS Safety Report 13826586 (Version 1)
Quarter: 2017Q3

REPORT INFORMATION
  Report Type: Spontaneous
  Country: US (occurrence: US)
  Receive Date: 20170802
  Receipt Date: 20170802
  Transmission Date: 20171127
  Serious: No
  Sender: FDA-Public Use
  Company Number: US-ROCHE-643892

PATIENT
  Age: 73 Year
  Sex: Male

DRUGS (3)
  1. BONIVA [Suspect]
     Active Substance: IBANDRONATE SODIUM
     Indication: OSTEOPOROSIS
     Route: 048
  2. BONIVA [Suspect]
     Active Substance: IBANDRONATE SODIUM
     Indication: OSTEOPOROSIS
     Dosage: DOSE: 3 MG/ML
     Route: 051
  3. BONIVA [Suspect]
     Active Substance: IBANDRONATE SODIUM
     Dosage: DOSE: 3MG/ML
     Route: 051
     Dates: start: 20090502, end: 20090502

REACTIONS (1)
  - Pain [Unknown]

NARRATIVE: CASE EVENT DATE: 20090504
